FAERS Safety Report 12345609 (Version 1)
Quarter: 2016Q2

REPORT INFORMATION
  Report Type: Spontaneous
  Country: AU (occurrence: AU)
  Receive Date: 20160509
  Receipt Date: 20160509
  Transmission Date: 20160815
  Serious: Yes (Hospitalization, Other)
  Sender: FDA-Public Use
  Company Number: AU-BRISTOL-MYERS SQUIBB COMPANY-BMS-2016-034958

PATIENT
  Age: 7 Decade
  Sex: Male

DRUGS (1)
  1. ELIQUIS [Suspect]
     Active Substance: APIXABAN
     Indication: PRODUCT USED FOR UNKNOWN INDICATION
     Dosage: NOT AVAILABLE
     Route: 065

REACTIONS (9)
  - Abdominal pain upper [Unknown]
  - Platelet count decreased [Unknown]
  - Transfusion [Unknown]
  - Disseminated intravascular coagulation [Unknown]
  - Hepatic enzyme increased [Unknown]
  - Hepatic pain [Unknown]
  - Malaise [Unknown]
  - Blood albumin decreased [Unknown]
  - Pyrexia [Unknown]
